FAERS Safety Report 23728181 (Version 2)
Quarter: 2025Q3

REPORT INFORMATION
  Report Type: Spontaneous
  Country: EU (occurrence: EU)
  Receive Date: 20240410
  Receipt Date: 20250910
  Transmission Date: 20251021
  Serious: Yes (Other)
  Sender: MSN LABORATORIES PRIVATE LIMITED
  Company Number: EU-EMA-DD-20220106-singh_p11-193638

PATIENT

DRUGS (19)
  1. PREGABALIN [Suspect]
     Active Substance: PREGABALIN
     Indication: Migraine
     Dosage: 100 MILLIGRAM DAILY
     Route: 048
  2. PREGABALIN [Suspect]
     Active Substance: PREGABALIN
     Route: 048
  3. AJOVY [Suspect]
     Active Substance: FREMANEZUMAB-VFRM
     Indication: Migraine
     Dosage: 100 MILLIGRAM DAILY
     Route: 048
  4. AJOVY [Suspect]
     Active Substance: FREMANEZUMAB-VFRM
     Route: 058
  5. VENLAFAXINE [Suspect]
     Active Substance: VENLAFAXINE HYDROCHLORIDE
     Indication: Migraine
     Dosage: 100 MILLIGRAM DAILY
     Route: 048
  6. VENLAFAXINE [Suspect]
     Active Substance: VENLAFAXINE HYDROCHLORIDE
     Dosage: 150 MILLIGRAM DAILY
     Route: 048
  7. TOPIRAMATE [Suspect]
     Active Substance: TOPIRAMATE
     Indication: Migraine without aura
     Dosage: 100 MILLIGRAM DAILY
     Route: 048
  8. TOPIRAMATE [Suspect]
     Active Substance: TOPIRAMATE
     Indication: Migraine
     Dosage: 75 MILLIGRAM DAILY
     Route: 048
  9. TOPIRAMATE [Suspect]
     Active Substance: TOPIRAMATE
     Dosage: 75 MILLIGRAM DAILY
     Route: 048
  10. VALPROATE [Suspect]
     Active Substance: VALPROIC ACID
     Indication: Migraine
     Route: 048
  11. VALPROATE [Suspect]
     Active Substance: VALPROIC ACID
     Indication: Migraine
     Dosage: 800 MILLIGRAM DAILY
     Route: 048
  12. VALPROATE [Suspect]
     Active Substance: VALPROIC ACID
     Dosage: 100 MILLIGRAM DAILY
     Route: 048
  13. IBUPROFEN [Suspect]
     Active Substance: IBUPROFEN
     Indication: Migraine prophylaxis
     Dosage: 400 MILLIGRAM, BID, 8-10 DAYS IN MONTH
     Route: 065
  14. IBUPROFEN [Suspect]
     Active Substance: IBUPROFEN
     Indication: Migraine
  15. SUMATRIPTAN [Suspect]
     Active Substance: SUMATRIPTAN
     Indication: Migraine prophylaxis
     Dosage: 100 MILLIGRAM DAILY
     Route: 048
  16. SUMATRIPTAN [Suspect]
     Active Substance: SUMATRIPTAN
     Indication: Migraine
     Route: 065
  17. CINNARIZINE [Concomitant]
     Active Substance: CINNARIZINE
     Dosage: 75 MG, QD
     Route: 065
  18. CINNARIZINE [Concomitant]
     Active Substance: CINNARIZINE
     Indication: Rash
  19. IBUPROFEN [Concomitant]
     Active Substance: IBUPROFEN
     Indication: Headache
     Route: 065

REACTIONS (11)
  - Migraine without aura [Recovered/Resolved]
  - Acute respiratory distress syndrome [Unknown]
  - Product use in unapproved indication [Unknown]
  - Product use issue [Unknown]
  - Drug ineffective [Unknown]
  - Therapeutic product effect incomplete [Unknown]
  - Medication overuse headache [Recovered/Resolved]
  - Drug intolerance [Unknown]
  - Injection site mass [Recovered/Resolved]
  - Dermatitis allergic [Unknown]
  - Fatigue [Recovered/Resolved]
